FAERS Safety Report 6025137-5 (Version None)
Quarter: 2008Q4

REPORT INFORMATION
  Report Type: 
  Country: None (occurrence: None)
  Receive Date: 20081231
  Receipt Date: 20081226
  Transmission Date: 20090506
  Serious: Yes (Other)
  Sender: FDA-Public Use
  Company Number: US-AMGEN-QUU325840

PATIENT
  Sex: Female

DRUGS (2)
  1. ENBREL [Suspect]
     Indication: ANKYLOSING SPONDYLITIS
     Route: 058
     Dates: start: 20081215
  2. PLAQUENIL [Concomitant]
     Dates: start: 20081208

REACTIONS (3)
  - HEART RATE INCREASED [None]
  - PARAESTHESIA [None]
  - SENSATION OF HEAVINESS [None]
